FAERS Safety Report 7272289-5 (Version None)
Quarter: 2011Q1

REPORT INFORMATION
  Report Type: 
  Country: None (occurrence: None)
  Receive Date: 20110203
  Receipt Date: 20110126
  Transmission Date: 20110831
  Serious: Yes (Hospitalization)
  Sender: FDA-Public Use
  Company Number: PHHO2010SE19308

PATIENT
  Sex: Male

DRUGS (3)
  1. CERTICAN [Suspect]
     Indication: HEART TRANSPLANT
     Dosage: 1 MG, BID
     Dates: start: 20100921
  2. CELLCEPT [Suspect]
     Indication: HEART TRANSPLANT
  3. PREDNISOLONE [Concomitant]

REACTIONS (5)
  - PNEUMONIA [None]
  - COUGH [None]
  - PYREXIA [None]
  - CHILLS [None]
  - PRODUCTIVE COUGH [None]
